FAERS Safety Report 4659390-7 (Version None)
Quarter: 2005Q2

REPORT INFORMATION
  Report Type: 
  Country: None (occurrence: None)
  Receive Date: 20050510
  Receipt Date: 20050420
  Transmission Date: 20051028
  Serious: Yes (Hospitalization)
  Sender: FDA-Public Use
  Company Number: 6014548

PATIENT
  Age: 58 Year
  Sex: Male

DRUGS (3)
  1. KALMA (1 MG) (ALPRAZOLAM) [Suspect]
     Indication: ALCOHOLISM
     Dosage: 3,00 MG (1 MG, 3 IN 1D)
  2. KALMA (1 MG) (ALPRAZOLAM) [Suspect]
     Indication: ANXIETY
     Dosage: 3,00 MG (1 MG, 3 IN 1D)
  3. PANADEINE FORTE (CODEINE PHOSPHATE, PARACETAMOL) [Concomitant]

REACTIONS (2)
  - CELLULITIS [None]
  - THROMBOCYTOPENIA [None]
